FAERS Safety Report 7345800-3 (Version None)
Quarter: 2011Q1

REPORT INFORMATION
  Report Type: 
  Country: None (occurrence: None)
  Receive Date: 20110311
  Receipt Date: 20110304
  Transmission Date: 20110831
  Serious: Yes (Other)
  Sender: FDA-Public Use
  Company Number: US-BIOGENIDEC-2010BI043849

PATIENT
  Age: 40 Year
  Sex: Female

DRUGS (2)
  1. ANTIBIOTICS (NOS) [Concomitant]
  2. AVONEX [Suspect]
     Indication: MULTIPLE SCLEROSIS
     Route: 030
     Dates: start: 20091230, end: 20101201

REACTIONS (1)
  - MALIGNANT MELANOMA [None]
